FAERS Safety Report 9347521 (Version 3)
Quarter: 2014Q2

REPORT INFORMATION
  Report Type: Report from Study
  Country: US (occurrence: US)
  Receive Date: 20130614
  Receipt Date: 20140618
  Transmission Date: 20141212
  Serious: Yes (Hospitalization)
  Sender: FDA-Public Use
  Company Number: US-BIOGENIDEC-2013BI051462

PATIENT
  Age: 58 Year
  Sex: Female
  Weight: 71 kg

DRUGS (9)
  1. TYSABRI [Suspect]
     Indication: MULTIPLE SCLEROSIS
     Route: 042
     Dates: start: 20120326, end: 20130315
  2. AVONEX [Concomitant]
     Indication: MULTIPLE SCLEROSIS
     Route: 030
     Dates: start: 20001101
  3. AMPYRA [Concomitant]
     Indication: MULTIPLE SCLEROSIS
     Route: 048
     Dates: start: 20111104
  4. TECFIDERA [Concomitant]
  5. VITAMIN D (ERGOCALCIFEROL) [Concomitant]
     Route: 048
  6. PAXIL [Concomitant]
  7. PROZAC [Concomitant]
  8. AMOXICILLIN [Concomitant]
  9. VESICARE (SOLIFENACIN SUCCINATE) [Concomitant]
     Route: 048

REACTIONS (1)
  - Gastrointestinal disorder [Recovered/Resolved]
